FAERS Safety Report 10753981 (Version 1)
Quarter: 2015Q1

REPORT INFORMATION
  Report Type: Spontaneous
  Country: US (occurrence: None)
  Receive Date: 20150130
  Receipt Date: 20150130
  Transmission Date: 20150721
  Serious: No
  Sender: FDA-Public Use
  Company Number: None

PATIENT
  Age: 62 Year
  Sex: Female

DRUGS (10)
  1. ATENOLOL. [Concomitant]
     Active Substance: ATENOLOL
  2. NORCO [Concomitant]
     Active Substance: ACETAMINOPHEN\HYDROCODONE BITARTRATE
  3. PERCOCCT [Concomitant]
  4. VIGIL [Concomitant]
     Active Substance: MODAFINIL
  5. BACLOFEN. [Concomitant]
     Active Substance: BACLOFEN
  6. LOSARTAN [Concomitant]
     Active Substance: LOSARTAN
  7. AMPYRA [Suspect]
     Active Substance: DALFAMPRIDINE
     Indication: MULTIPLE SCLEROSIS
     Route: 048
     Dates: start: 201006
  8. COPAXONE [Concomitant]
     Active Substance: GLATIRAMER ACETATE
  9. OXYBUTYNIN [Concomitant]
     Active Substance: OXYBUTYNIN
  10. TIZANIDINE (TIZANIDINE) [Concomitant]
     Active Substance: TIZANIDINE

REACTIONS (4)
  - Urinary tract infection [None]
  - Drug resistance [None]
  - Citrobacter test positive [None]
  - Enterobacter test positive [None]

NARRATIVE: CASE EVENT DATE: 20150109
